FAERS Safety Report 18427983 (Version 2)
Quarter: 2021Q4

REPORT INFORMATION
  Report Type: Spontaneous
  Country: US (occurrence: US)
  Receive Date: 20201026
  Receipt Date: 20211025
  Transmission Date: 20220303
  Serious: No
  Sender: FDA-Public Use
  Company Number: US-ABBVIE-20K-163-3614764-00

PATIENT
  Sex: Female

DRUGS (5)
  1. LUPRON DEPOT [Suspect]
     Active Substance: LEUPROLIDE ACETATE
     Indication: Menopause
     Dosage: CALLER THINKS 3.7 MG DOSE INJECTION ADMINISTERED IN HEALTHCARE FACILITY
     Route: 065
     Dates: start: 201704, end: 202010
  2. IBRANCE [Suspect]
     Active Substance: PALBOCICLIB
     Indication: Neoplasm malignant
     Dosage: FOR 21 DAYS ON THEN 7 DAYS OFF
     Route: 065
     Dates: start: 2017
  3. IBRANCE [Suspect]
     Active Substance: PALBOCICLIB
     Dosage: DOSE DECREASED, ONES A DAILY FOR 21 DAYS ON THEN 7 DAYS OFF
     Route: 065
     Dates: start: 20210430
  4. LETROZOLE [Concomitant]
     Active Substance: LETROZOLE
     Indication: Neoplasm malignant
     Dosage: BY MOUTH EVERY DAY WITH NO INTERRUPTION
     Dates: start: 2017
  5. XGEVA [Concomitant]
     Active Substance: DENOSUMAB
     Indication: Bone disorder
     Dosage: UNKNOWN DOSE VIA INJECTION EVERY 3 MONTHS
     Dates: start: 2017

REACTIONS (12)
  - Skin abrasion [Recovering/Resolving]
  - Sensitive skin [Recovering/Resolving]
  - Toothache [Recovering/Resolving]
  - Mastication disorder [Recovering/Resolving]
  - Amenorrhoea [Unknown]
  - Arthralgia [Recovering/Resolving]
  - Malaise [Recovering/Resolving]
  - Fatigue [Unknown]
  - Headache [Unknown]
  - Hot flush [Unknown]
  - Weight increased [Unknown]
  - Palpitations [Unknown]

NARRATIVE: CASE EVENT DATE: 20170101
